FAERS Safety Report 20710639 (Version 1)
Quarter: 2022Q2

REPORT INFORMATION
  Report Type: Spontaneous
  Country: ES (occurrence: ES)
  Receive Date: 20220414
  Receipt Date: 20220414
  Transmission Date: 20220721
  Serious: Yes (Life-Threatening)
  Sender: FDA-Public Use
  Company Number: None

PATIENT
  Age: 84 Year
  Sex: Female

DRUGS (8)
  1. PEMETREXED [Suspect]
     Active Substance: PEMETREXED
     Indication: Lung adenocarcinoma stage III
     Dosage: 830 MG, CYCLICAL (EVERY 21 DAYS)
     Route: 042
     Dates: start: 20190506, end: 20201026
  2. CALCIFEDIOL [Concomitant]
     Active Substance: CALCIFEDIOL
     Indication: Product used for unknown indication
     Dosage: 0.266 MG, MONTHLY (1/M) (EVERY 30 DAYS)
     Route: 048
     Dates: start: 20200312
  3. JARDIANCE [Concomitant]
     Active Substance: EMPAGLIFLOZIN
     Indication: Diabetes mellitus
     Dosage: 10 MG, OTHER (C/24H)
     Route: 048
     Dates: start: 20190705
  4. OMEPRAZOLE [Concomitant]
     Active Substance: OMEPRAZOLE
     Indication: Product used for unknown indication
     Dosage: 20 MG, OTHER (A-DE)
     Route: 048
     Dates: start: 20100414
  5. FERBISOL [Concomitant]
     Indication: Product used for unknown indication
     Dosage: 100 MG, OTHER
     Route: 048
     Dates: start: 20190212
  6. ACETAMINOPHEN [Concomitant]
     Active Substance: ACETAMINOPHEN
     Indication: Product used for unknown indication
     Dosage: 650 MG, OTHER
     Route: 048
     Dates: start: 20140731
  7. CLOBEX [CLOBETASOL PROPIONATE] [Concomitant]
     Indication: Rash papular
     Dosage: 7.5 MG, OTHER (W/72 HOURS)
     Route: 061
     Dates: start: 20181017
  8. CARBIDOPA\LEVODOPA [Concomitant]
     Active Substance: CARBIDOPA\LEVODOPA
     Indication: Parkinson^s disease
     Dosage: 25 MG, OTHER (1.0 COMP A-DECOCE)
     Route: 048
     Dates: start: 20180829

REACTIONS (1)
  - Haematotoxicity [Recovered/Resolved]

NARRATIVE: CASE EVENT DATE: 20201105
